FAERS Safety Report 6898212-0 (Version None)
Quarter: 2010Q3

REPORT INFORMATION
  Report Type: 
  Country: None (occurrence: None)
  Receive Date: 20100802
  Receipt Date: 20070925
  Transmission Date: 20110219
  Serious: No
  Sender: FDA-Public Use
  Company Number: US-PFIZER INC-2007077353

PATIENT
  Sex: Female
  Weight: 124.7 kg

DRUGS (4)
  1. LYRICA [Suspect]
     Indication: FIBROMYALGIA
     Route: 048
  2. ALBUTEROL [Concomitant]
  3. MONTELUKAST SODIUM [Concomitant]
  4. NIACIN [Concomitant]

REACTIONS (3)
  - DEPRESSION [None]
  - OEDEMA [None]
  - WEIGHT INCREASED [None]
